FAERS Safety Report 9787287 (Version 2)
Quarter: 2013Q4

REPORT INFORMATION
  Report Type: Spontaneous
  Country: US (occurrence: US)
  Receive Date: 20131230
  Receipt Date: 20131230
  Transmission Date: 20140711
  Serious: Yes (Other)
  Sender: FDA-Public Use
  Company Number: US-BEH-2013038990

PATIENT
  Sex: Male
  Weight: 69 kg

DRUGS (23)
  1. PRIVIGEN [Suspect]
  2. PRIVIGEN [Suspect]
     Dosage: 350 ML OVER 3-6 HOURS
     Route: 042
     Dates: start: 20131114
  3. PRIVIGEN [Suspect]
     Indication: LUNG TRANSPLANT
     Dosage: 350 ML OVER 3-6 HOURS
     Route: 042
     Dates: start: 20131114
  4. ACETAMINOPHEN [Concomitant]
  5. DIPHENHYDRAMINE [Concomitant]
  6. HEPARIN [Concomitant]
  7. NORMAL SALINE [Concomitant]
  8. SODIUM CHLORIDE [Concomitant]
  9. EPI-PEN [Concomitant]
  10. LMX [Concomitant]
  11. CELLCEPT [Concomitant]
  12. SINEMET [Concomitant]
  13. REQUIP [Concomitant]
  14. VALACYCLOVIR [Concomitant]
  15. PREDNISONE [Concomitant]
  16. SYNTHROID [Concomitant]
  17. LANTUS [Concomitant]
  18. CLONAZEPAM [Concomitant]
  19. MIDODRINE [Concomitant]
  20. ZOFRAN [Concomitant]
  21. TACROLIMUS [Concomitant]
  22. MAGNESIUM OXIDE [Concomitant]
  23. BACTRIM DS [Concomitant]

REACTIONS (2)
  - Cerebrovascular accident [Unknown]
  - Bronchitis [Unknown]
